FAERS Safety Report 9174722 (Version 1)
Quarter: 2013Q1

REPORT INFORMATION
  Report Type: Spontaneous
  Country: FR (occurrence: FR)
  Receive Date: 20130320
  Receipt Date: 20130320
  Transmission Date: 20140127
  Serious: Yes (Death, Hospitalization, Other)
  Sender: FDA-Public Use
  Company Number: FR-ELI_LILLY_AND_COMPANY-FR201303002793

PATIENT
  Sex: Male

DRUGS (3)
  1. ZYPREXA [Suspect]
     Indication: SCHIZOPHRENIA
     Dosage: 10 MG, QD
     Route: 048
     Dates: start: 1998
  2. XANAX [Concomitant]
     Indication: SCHIZOPHRENIA
  3. CANNABIS [Concomitant]

REACTIONS (6)
  - Cardiac arrest [Fatal]
  - Grand mal convulsion [Fatal]
  - Brain hypoxia [Unknown]
  - Suicidal ideation [Unknown]
  - Anxiety [Unknown]
  - Fatigue [Unknown]
